FAERS Safety Report 7509486-7 (Version None)
Quarter: 2011Q2

REPORT INFORMATION
  Report Type: 
  Country: None (occurrence: None)
  Receive Date: 20110519
  Receipt Date: 20110505
  Transmission Date: 20111010
  Serious: Yes (Hospitalization)
  Sender: FDA-Public Use
  Company Number: 2011MA005432

PATIENT
  Age: 38 Year
  Sex: Male

DRUGS (5)
  1. ETHAMBUTOL HYDROCHLORIDE [Concomitant]
  2. RIFAMPIN [Suspect]
  3. ISONIAZID [Concomitant]
  4. PYRAZINAMIDE [Concomitant]
  5. INFLIXIMAB [Concomitant]

REACTIONS (5)
  - ANAEMIA [None]
  - LYMPH NODE TUBERCULOSIS [None]
  - SPLENIC ABSCESS [None]
  - DISSEMINATED TUBERCULOSIS [None]
  - PARADOXICAL DRUG REACTION [None]
